FAERS Safety Report 12854632 (Version 1)
Quarter: 2016Q4

REPORT INFORMATION
  Report Type: Spontaneous
  Country: US (occurrence: US)
  Receive Date: 20161017
  Receipt Date: 20161017
  Transmission Date: 20170207
  Serious: No
  Sender: FDA-Public Use
  Company Number: US-PERRIGO-16US015655

PATIENT
  Age: 58 Year
  Sex: Male
  Weight: 68.27 kg

DRUGS (1)
  1. NICOTINE POLACRILEX [Suspect]
     Active Substance: NICOTINE
     Indication: SMOKING CESSATION THERAPY
     Dosage: 4 MG, TWICE
     Route: 002
     Dates: start: 20160425, end: 20160425

REACTIONS (4)
  - Tongue discolouration [Recovering/Resolving]
  - Wrong drug administered [Recovered/Resolved]
  - Tooth discolouration [Recovering/Resolving]
  - Oral mucosal discolouration [Recovering/Resolving]

NARRATIVE: CASE EVENT DATE: 20160425
